FAERS Safety Report 5954840-8 (Version None)
Quarter: 2008Q4

REPORT INFORMATION
  Report Type: 
  Country: None (occurrence: None)
  Receive Date: 20081112
  Receipt Date: 20081027
  Transmission Date: 20090506
  Serious: Yes (Hospitalization)
  Sender: FDA-Public Use
  Company Number: IDA-00146

PATIENT
  Age: 17 Year
  Sex: Female

DRUGS (9)
  1. PROPRANOLOL [Suspect]
     Indication: TACHYCARDIA
     Dosage: ORAL FORMULATION: TABLET
     Route: 048
     Dates: start: 20080907, end: 20080921
  2. RISPERDAL [Suspect]
     Indication: PSYCHOTIC DISORDER
     Dosage: ORAL
     Route: 048
     Dates: start: 20080905, end: 20080921
  3. TERCIAN (CYAMEMAZINE) [Suspect]
     Indication: PSYCHOTIC DISORDER
     Dosage: ORAL
     Route: 048
     Dates: start: 20080910, end: 20080917
  4. CITALOPRAM HYDROBROMIDE [Suspect]
     Dosage: ORAL / INTRAVENOUS
     Dates: start: 20080908, end: 20080901
  5. CITALOPRAM HYDROBROMIDE [Suspect]
     Dosage: ORAL / INTRAVENOUS
     Dates: start: 20080901, end: 20080921
  6. CLONAZEPAM [Suspect]
     Dates: start: 20080913, end: 20080921
  7. LOXAPINE SUCCINATE [Concomitant]
  8. THERALENE (ALIMEMAZINE TARTRATE) [Concomitant]
  9. ATARAX [Concomitant]

REACTIONS (5)
  - CYTOMEGALOVIRUS INFECTION [None]
  - EYELID OEDEMA [None]
  - RASH MACULO-PAPULAR [None]
  - TOXIC SKIN ERUPTION [None]
  - TOXOPLASMOSIS [None]
